FAERS Safety Report 6999705-8 (Version None)
Quarter: 2010Q3

REPORT INFORMATION
  Report Type: 
  Country: None (occurrence: None)
  Receive Date: 20100920
  Receipt Date: 20100602
  Transmission Date: 20110219
  Serious: Yes (Hospitalization, Other)
  Sender: FDA-Public Use
  Company Number: US-ASTRAZENECA-2008UW13531

PATIENT
  Age: 17955 Day
  Sex: Male
  Weight: 108.9 kg

DRUGS (6)
  1. SEROQUEL [Suspect]
     Indication: SEDATION
     Route: 048
     Dates: start: 20040201, end: 20060701
  2. SEROQUEL [Suspect]
     Indication: POST-TRAUMATIC STRESS DISORDER
     Route: 048
     Dates: start: 20040201, end: 20060701
  3. LEXAPRO [Concomitant]
     Indication: DEPRESSION
     Dates: start: 20040201, end: 20060101
  4. ZOLOFT [Concomitant]
     Indication: DEPRESSION
     Dates: start: 20050101
  5. TRAZODONE HCL [Concomitant]
     Indication: DEPRESSION
     Dates: start: 20070101
  6. RISPERDAL [Concomitant]
     Dates: start: 20040801, end: 20040801

REACTIONS (2)
  - DIABETIC KETOACIDOSIS [None]
  - TYPE 2 DIABETES MELLITUS [None]
